FAERS Safety Report 7038985-X (Version None)
Quarter: 2010Q4

REPORT INFORMATION
  Report Type: 
  Country: None (occurrence: None)
  Receive Date: 20101012
  Receipt Date: 20101002
  Transmission Date: 20110411
  Serious: Yes (Hospitalization)
  Sender: FDA-Public Use
  Company Number: US-US-EMD SERONO, INC.-7020093

PATIENT
  Sex: Female
  Weight: 66 kg

DRUGS (5)
  1. REBIF [Suspect]
     Indication: MULTIPLE SCLEROSIS
     Dates: start: 20060717
  2. RITALIN [Concomitant]
     Dates: end: 20100928
  3. ARICEPT [Concomitant]
  4. MECLIZINE [Concomitant]
  5. LEVOTHYROXINE [Concomitant]

REACTIONS (5)
  - ARTERIOVENOUS MALFORMATION [None]
  - HYDROCEPHALUS [None]
  - PYREXIA [None]
  - THROMBOSIS [None]
  - WHITE BLOOD CELL COUNT INCREASED [None]
